FAERS Safety Report 15050215 (Version 1)
Quarter: 2018Q2

REPORT INFORMATION
  Report Type: Report from Study
  Country: RU (occurrence: RU)
  Receive Date: 20180622
  Receipt Date: 20180622
  Transmission Date: 20180711
  Serious: Yes (Hospitalization)
  Sender: FDA-Public Use
  Company Number: RU-TESARO, INC-RU-2018TSO02429

PATIENT

DRUGS (34)
  1. DICYNONE [Concomitant]
     Active Substance: ETHAMSYLATE
     Indication: THROMBOCYTOPENIA
     Dosage: 250 MG, TID
     Route: 048
     Dates: start: 20180417, end: 20180504
  2. SODIUM CHLORIDE. [Concomitant]
     Active Substance: SODIUM CHLORIDE
     Indication: HYPERSENSITIVITY
     Dosage: 100 ML, QD
     Route: 042
     Dates: start: 20180417, end: 20180420
  3. CAPTOPRIL. [Concomitant]
     Active Substance: CAPTOPRIL
     Indication: BLOOD PRESSURE MANAGEMENT
     Dosage: 12.5 MG, PRN
     Route: 048
     Dates: start: 20180417, end: 20180420
  4. ENALAPRIL [Concomitant]
     Active Substance: ENALAPRIL
     Dosage: 5 MG, BID
     Route: 048
     Dates: start: 20180419, end: 20180504
  5. ABROXOL [Concomitant]
     Indication: INTERSTITIAL LUNG DISEASE
  6. FERRUM LEK                         /00023548/ [Concomitant]
     Indication: ANAEMIA
     Dosage: 1 DF, BID
     Route: 048
     Dates: start: 20180417, end: 20180503
  7. PREDNISOLONE. [Concomitant]
     Active Substance: PREDNISOLONE
     Indication: THROMBOCYTOPENIA
     Dosage: 30 MG, QD
     Route: 042
     Dates: start: 20180417, end: 20180417
  8. HEPTOR [Concomitant]
     Indication: ASPARTATE AMINOTRANSFERASE INCREASED
  9. ABROXOL [Concomitant]
     Indication: COUGH
     Dosage: 30 MG, TID
     Route: 048
     Dates: start: 20180510, end: 20180519
  10. NIRAPARIB [Suspect]
     Active Substance: NIRAPARIB
     Dosage: 200 MG, QD
     Route: 048
     Dates: start: 20180514
  11. VICASOL [Concomitant]
     Indication: THROMBOCYTOPENIA
     Dosage: 15 MG, BID
     Route: 048
     Dates: start: 20180417, end: 20180504
  12. SODIUM CHLORIDE. [Concomitant]
     Active Substance: SODIUM CHLORIDE
     Indication: NEUTROPENIA
     Dosage: 100 ML, QD
     Route: 048
     Dates: start: 20180421, end: 20180425
  13. INDAPAMID [Concomitant]
     Active Substance: INDAPAMIDE
     Indication: BLOOD PRESSURE MANAGEMENT
     Dosage: 5 MG, SINGLE
     Route: 048
     Dates: start: 20180419, end: 20180419
  14. ENALAPRIL [Concomitant]
     Active Substance: ENALAPRIL
     Indication: BLOOD PRESSURE MANAGEMENT
     Dosage: 5 MG, BID
     Route: 048
     Dates: start: 20180417, end: 20180418
  15. AMOKSIKLAV                         /00756801/ [Concomitant]
     Indication: RESPIRATORY DISORDER
     Dosage: 625 MG, BID
     Route: 048
     Dates: start: 20180505, end: 20180509
  16. OMEPRAZOLE. [Concomitant]
     Active Substance: OMEPRAZOLE
     Indication: GASTRITIS PROPHYLAXIS
     Dosage: 20 MG, BID
     Route: 048
     Dates: start: 20180417, end: 20180504
  17. PREDNISOLONE. [Concomitant]
     Active Substance: PREDNISOLONE
     Indication: NEUTROPENIA
     Dosage: 60 MG, QD
     Route: 042
     Dates: start: 20180417, end: 20180420
  18. SODIUM CHLORIDE. [Concomitant]
     Active Substance: SODIUM CHLORIDE
     Indication: THROMBOCYTOPENIA
     Dosage: 50 ML, SINGLE
     Dates: start: 20180417, end: 20180417
  19. SODIUM CHLORIDE. [Concomitant]
     Active Substance: SODIUM CHLORIDE
     Dosage: 250 ML, QD
     Route: 042
     Dates: start: 20180426, end: 20180426
  20. ACILOC                             /00397401/ [Concomitant]
     Indication: ALLERGY PROPHYLAXIS
     Dosage: 50 MG, QD
     Route: 042
     Dates: start: 20180417, end: 20180425
  21. LASOLVAN [Concomitant]
     Active Substance: AMBROXOL HYDROCHLORIDE
     Indication: ACUTE RESPIRATORY DISTRESS SYNDROME
     Dosage: UNK, PRN
     Route: 055
     Dates: start: 20180429, end: 20180504
  22. ENALAPRIL [Concomitant]
     Active Substance: ENALAPRIL
     Indication: ANTIBIOTIC PROPHYLAXIS
     Dosage: 2.5 MG, BID
     Route: 048
     Dates: start: 20180418, end: 20180419
  23. FLUCONAZOLE. [Concomitant]
     Active Substance: FLUCONAZOLE
     Indication: RESPIRATORY DISORDER
     Dosage: 150 MG, QD
     Route: 048
     Dates: start: 20180505, end: 20180505
  24. ACILOC                             /00397401/ [Concomitant]
     Indication: GASTRITIS PROPHYLAXIS
  25. FOLIC ACID. [Concomitant]
     Active Substance: FOLIC ACID
     Indication: ANAEMIA
     Dosage: 1 MG, BID
     Route: 048
     Dates: start: 20180417, end: 20180503
  26. TRANEXAM [Concomitant]
     Active Substance: TRANEXAMIC ACID
     Indication: THROMBOCYTOPENIA
     Dosage: 500 MG, BID
     Route: 042
     Dates: start: 20180417, end: 20180424
  27. PREDNISOLONE. [Concomitant]
     Active Substance: PREDNISOLONE
     Dosage: 60 MG, QD
     Route: 042
     Dates: start: 20180426, end: 20180428
  28. SODIUM CHLORIDE. [Concomitant]
     Active Substance: SODIUM CHLORIDE
     Indication: GASTRITIS PROPHYLAXIS
     Dosage: 0.8 % (100 ML), QD
     Route: 042
     Dates: start: 20180417, end: 20180425
  29. HEPTOR [Concomitant]
     Indication: ALANINE AMINOTRANSFERASE INCREASED
     Dosage: 400 MG, BID
     Route: 048
     Dates: start: 20180423, end: 20180504
  30. BERODUAL INHALATION SOLUTION [Concomitant]
     Indication: ACUTE RESPIRATORY DISTRESS SYNDROME
     Dosage: UNK, PRN
     Route: 055
     Dates: start: 20180429, end: 20180510
  31. NIRAPARIB [Suspect]
     Active Substance: NIRAPARIB
     Indication: OVARIAN CANCER
     Dosage: 300 MG, QD
     Route: 048
     Dates: start: 20180322, end: 20180418
  32. PREDNISOLONE. [Concomitant]
     Active Substance: PREDNISOLONE
     Dosage: 30 MG, QD
     Route: 042
     Dates: start: 20180421, end: 20180425
  33. INDAPAMID [Concomitant]
     Active Substance: INDAPAMIDE
     Dosage: 1.5 MG, QD
     Route: 048
     Dates: start: 20180419, end: 20180504
  34. FILGRASTIM [Concomitant]
     Active Substance: FILGRASTIM
     Indication: NEUTROPENIA
     Dosage: 300 ?G, SINGLE
     Route: 058
     Dates: start: 20180425, end: 20180425

REACTIONS (1)
  - Pneumonia fungal [Recovered/Resolved]

NARRATIVE: CASE EVENT DATE: 20180516
